FAERS Safety Report 5104503-6 (Version None)
Quarter: 2006Q3

REPORT INFORMATION
  Report Type: 
  Country: None (occurrence: None)
  Receive Date: 20060914
  Receipt Date: 20060803
  Transmission Date: 20061208
  Serious: Yes (Death, Life-Threatening, Hospitalization, Other)
  Sender: FDA-Public Use
  Company Number: US-BRISTOL-MYERS SQUIBB COMPANY-13464938

PATIENT
  Age: 56 Year
  Sex: Male

DRUGS (29)
  1. CARBOPLATIN [Suspect]
     Indication: NON-SMALL CELL LUNG CANCER
     Route: 042
     Dates: start: 20060406, end: 20060718
  2. PACLITAXEL [Suspect]
     Indication: NON-SMALL CELL LUNG CANCER
     Route: 042
     Dates: start: 20060406, end: 20060718
  3. BLINDED: SORAFENIB [Suspect]
     Indication: NON-SMALL CELL LUNG CANCER
     Route: 048
     Dates: start: 20060524, end: 20060722
  4. BLINDED: PLACEBO [Suspect]
     Indication: NON-SMALL CELL LUNG CANCER
     Route: 048
     Dates: start: 20060524, end: 20060722
  5. ESTER-C [Concomitant]
     Indication: MEDICAL DIET
     Dates: start: 20060101, end: 20060715
  6. PAXIL CR [Concomitant]
     Indication: DEPRESSION
     Dates: start: 20060320
  7. MEGACE [Concomitant]
     Indication: WEIGHT DECREASED
     Route: 048
     Dates: start: 20060406, end: 20060509
  8. MARINOL [Concomitant]
     Indication: WEIGHT DECREASED
     Route: 048
     Dates: start: 20060406
  9. COMPAZINE [Concomitant]
     Indication: NAUSEA
     Route: 048
     Dates: start: 20060406
  10. CORAL CALCIUM [Concomitant]
     Indication: MEDICAL DIET
     Route: 048
     Dates: start: 20060418, end: 20060715
  11. GINSENG [Concomitant]
     Indication: MEDICAL DIET
     Route: 048
     Dates: start: 20060301, end: 20060715
  12. BACTRIM DS [Concomitant]
     Indication: ANTIBIOTIC PROPHYLAXIS
     Route: 048
     Dates: start: 20060627
  13. ATIVAN [Concomitant]
     Indication: ANXIETY
     Dates: start: 20060713, end: 20060713
  14. LOMOTIL [Concomitant]
     Indication: DIARRHOEA
     Dates: start: 20060711
  15. AUGMENTIN [Concomitant]
     Indication: ANTIBIOTIC PROPHYLAXIS
     Route: 048
     Dates: start: 20060627
  16. TYLENOL [Concomitant]
     Indication: HEADACHE
     Route: 048
  17. FISH OIL [Concomitant]
  18. MULTI-VITAMIN [Concomitant]
  19. XANAX [Concomitant]
     Indication: ANXIETY
     Dates: start: 20060627
  20. ATROPINE [Concomitant]
     Indication: DIARRHOEA
     Dates: start: 20060713, end: 20060713
  21. DECADRON [Concomitant]
     Indication: FATIGUE
     Dates: start: 20060714, end: 20060714
  22. VITAMIN B COMPLEX CAP [Concomitant]
     Indication: NEUROPATHY PERIPHERAL
     Dates: start: 20060627
  23. BENADRYL [Concomitant]
     Indication: PROPHYLAXIS
     Dates: start: 20060502, end: 20060719
  24. LASIX [Concomitant]
     Indication: PROPHYLAXIS
     Dates: start: 20060616, end: 20060719
  25. PLATELETS [Concomitant]
     Indication: THROMBOCYTOPENIA
     Dates: start: 20060502, end: 20060502
  26. ARANESP [Concomitant]
     Indication: ANAEMIA
     Route: 058
     Dates: start: 20060718, end: 20060718
  27. RED BLOOD CELLS [Concomitant]
     Indication: ANAEMIA
     Route: 042
     Dates: start: 20060716, end: 20060719
  28. CIPRO [Concomitant]
     Route: 042
     Dates: start: 20060723
  29. FLAGYL [Concomitant]
     Route: 048
     Dates: start: 20060723

REACTIONS (9)
  - CARDIAC FAILURE CONGESTIVE [None]
  - DEHYDRATION [None]
  - MALIGNANT NEOPLASM PROGRESSION [None]
  - PANCYTOPENIA [None]
  - RENAL FAILURE [None]
  - RESPIRATORY FAILURE [None]
  - SEPSIS [None]
  - SINUS TACHYCARDIA [None]
  - THROMBOCYTOPENIA [None]
